FAERS Safety Report 8941214 (Version 1)
Quarter: 2012Q4

REPORT INFORMATION
  Report Type: 
  Country: US (occurrence: US)
  Receive Date: 20121203
  Receipt Date: 20121203
  Transmission Date: 20130627
  Serious: Yes (Death, Other)
  Sender: FDA-Public Use
  Company Number: US-ROCHE-1160450

PATIENT

DRUGS (2)
  1. GANCICLOVIR [Suspect]
     Indication: ANTIVIRAL PROPHYLAXIS
     Route: 048
  2. GANCICLOVIR [Suspect]
     Indication: LIVER TRANSPLANT

REACTIONS (13)
  - Cytomegalovirus infection [Unknown]
  - Hepatic enzyme increased [Unknown]
  - Bile duct stenosis [Unknown]
  - Liver transplant rejection [Unknown]
  - Post procedural bile leak [Unknown]
  - Pyrexia [Unknown]
  - Renal failure [Unknown]
  - Ascites [Unknown]
  - Diarrhoea [Unknown]
  - Anaemia [Unknown]
  - Sepsis [Fatal]
  - Lung neoplasm malignant [Fatal]
  - Pneumonia cytomegaloviral [Fatal]
